FAERS Safety Report 7490671-8 (Version None)
Quarter: 2011Q2

REPORT INFORMATION
  Report Type: 
  Country: None (occurrence: None)
  Receive Date: 20110517
  Receipt Date: 20110517
  Transmission Date: 20111010
  Serious: Yes (Other)
  Sender: FDA-Public Use
  Company Number: None

PATIENT
  Age: 35 Year
  Sex: Female
  Weight: 56.246 kg

DRUGS (1)
  1. SUBOXONE [Suspect]
     Indication: DRUG DEPENDENCE
     Dosage: 8MG BID SL
     Route: 060
     Dates: start: 20090921, end: 20091120

REACTIONS (3)
  - MENTAL STATUS CHANGES [None]
  - HYPOKINESIA [None]
  - FEELING ABNORMAL [None]
